FAERS Safety Report 8217564-2 (Version None)
Quarter: 2012Q1

REPORT INFORMATION
  Report Type: 
  Country: None (occurrence: None)
  Receive Date: 20120319
  Receipt Date: 20120319
  Transmission Date: 20120608
  Serious: Yes (Death)
  Sender: FDA-Public Use
  Company Number: None

PATIENT
  Age: 68 Year
  Sex: Female
  Weight: 84.9 kg

DRUGS (4)
  1. ASPIRIN [Concomitant]
     Indication: CEREBROVASCULAR DISORDER
     Dosage: 325 MG
     Route: 048
  2. ASPIRIN [Concomitant]
     Indication: CORONARY ARTERY DISEASE
     Dosage: 325 MG
     Route: 048
  3. PRASUGREL [Suspect]
     Indication: CORONARY ARTERY DISEASE
     Dosage: 10 MG
     Route: 048
  4. PRASUGREL [Suspect]
     Indication: CEREBROVASCULAR DISORDER
     Dosage: 10 MG
     Route: 048

REACTIONS (3)
  - UNRESPONSIVE TO STIMULI [None]
  - SUBDURAL HAEMATOMA [None]
  - FALL [None]
